FAERS Safety Report 16535808 (Version 3)
Quarter: 2019Q4

REPORT INFORMATION
  Report Type: Spontaneous
  Country: US (occurrence: US)
  Receive Date: 20190705
  Receipt Date: 20191011
  Transmission Date: 20200122
  Serious: Yes (Death, Other)
  Sender: FDA-Public Use
  Company Number: US-ABBVIE-19K-163-2842832-00

PATIENT
  Age: 77 Year
  Sex: Male
  Weight: 73.09 kg

DRUGS (2)
  1. EFFEXOR [Suspect]
     Active Substance: VENLAFAXINE HYDROCHLORIDE
     Indication: HOT FLUSH
     Route: 048
     Dates: start: 201303
  2. LUPRON DEPOT [Suspect]
     Active Substance: LEUPROLIDE ACETATE
     Indication: PROSTATE CANCER
     Route: 065
     Dates: start: 20121205

REACTIONS (32)
  - Prostate cancer [Fatal]
  - Anxiety [Unknown]
  - Insomnia [Unknown]
  - Product administration error [Unknown]
  - Myalgia [Unknown]
  - Muscular weakness [Unknown]
  - Paraesthesia [Unknown]
  - Terminal state [Unknown]
  - Panic attack [Unknown]
  - Depression [Unknown]
  - Asphyxia [Unknown]
  - Fear [Unknown]
  - Injury [Unknown]
  - Arthralgia [Unknown]
  - Burning sensation [Unknown]
  - Rheumatoid arthritis [Unknown]
  - Pyrexia [Unknown]
  - Erectile dysfunction [Unknown]
  - Hot flush [Unknown]
  - Dysuria [Unknown]
  - Lower respiratory tract infection [Unknown]
  - Vomiting [Unknown]
  - Bladder disorder [Unknown]
  - Osteoporosis [Unknown]
  - Feeling of body temperature change [Unknown]
  - Fatigue [Unknown]
  - Shock [Unknown]
  - Temperature regulation disorder [Unknown]
  - Malaise [Unknown]
  - Decreased appetite [Unknown]
  - Immobile [Unknown]
  - Blood disorder [Unknown]

NARRATIVE: CASE EVENT DATE: 2013
